FAERS Safety Report 9361236 (Version 2)
Quarter: 2013Q3

REPORT INFORMATION
  Report Type: Spontaneous
  Country: US (occurrence: US)
  Receive Date: 20130621
  Receipt Date: 20130731
  Transmission Date: 20140515
  Serious: No
  Sender: FDA-Public Use
  Company Number: US-009507513-1306USA009845

PATIENT
  Age: 58 Year
  Sex: Female
  Weight: 62.59 kg

DRUGS (5)
  1. CLARITIN REDITABS 12HR [Suspect]
     Indication: HYPERSENSITIVITY
     Dosage: UNK, UNKNOWN
     Route: 048
     Dates: start: 20130420, end: 20130430
  2. CLARITIN REDITABS 12HR [Suspect]
     Indication: RHINORRHOEA
  3. KLONOPIN [Concomitant]
     Indication: ANXIETY
     Dosage: 0.5 MG, QD
     Route: 048
  4. TYLENOL [Concomitant]
     Indication: PAIN
     Dosage: 500 MG, UNKNOWN
  5. BENADRYL [Concomitant]
     Indication: HYPERSENSITIVITY
     Dosage: UNK, BID

REACTIONS (1)
  - Drug effect decreased [Unknown]
